FAERS Safety Report 9812925 (Version 1)
Quarter: 2014Q1

REPORT INFORMATION
  Report Type: Spontaneous
  Country: US (occurrence: None)
  Receive Date: 20140108
  Receipt Date: 20140108
  Transmission Date: 20141002
  Serious: Yes (Other)
  Sender: FDA-Public Use
  Company Number: 2014-US-000059

PATIENT
  Age: 42 Year
  Sex: Female

DRUGS (2)
  1. XYREM (SODIUM OXYBATE) ORAL SOLUTION, 500 MG/ML [Suspect]
     Indication: NARCOLEPSY
     Dosage: 2.25 G, BID, ORAL
     Route: 048
     Dates: start: 201105
  2. XYREM (SODIUM OXYBATE) ORAL SOLUTION, 500 MG/ML [Suspect]
     Indication: CATAPLEXY
     Dosage: 2.25 G, BID, ORAL
     Route: 048
     Dates: start: 201105

REACTIONS (2)
  - Food poisoning [None]
  - Hypersomnia [None]
